FAERS Safety Report 19054301 (Version 1)
Quarter: 2021Q1

REPORT INFORMATION
  Report Type: Spontaneous
  Country: US (occurrence: US)
  Receive Date: 20210325
  Receipt Date: 20210325
  Transmission Date: 20210420
  Serious: Yes (Other)
  Sender: FDA-Public Use
  Company Number: US-SUN PHARMACEUTICAL INDUSTRIES LTD-2021R1-286958

PATIENT
  Age: 22 Year
  Sex: Male

DRUGS (4)
  1. BACLOFEN. [Suspect]
     Active Substance: BACLOFEN
     Dosage: UNK(EVERY 8 HOUR)
     Route: 065
  2. BACLOFEN. [Suspect]
     Active Substance: BACLOFEN
     Indication: QUADRIPLEGIA
     Dosage: UNK
     Route: 037
  3. BACLOFEN. [Suspect]
     Active Substance: BACLOFEN
     Dosage: UNK(EVERY 6 HOUR)
     Route: 065
  4. BACLOFEN. [Suspect]
     Active Substance: BACLOFEN
     Dosage: UNK(EVERY 12 HOUR)
     Route: 065

REACTIONS (2)
  - Drug withdrawal syndrome [Unknown]
  - Rhabdomyolysis [Unknown]
